FAERS Safety Report 7444637-4 (Version None)
Quarter: 2011Q2

REPORT INFORMATION
  Report Type: 
  Country: None (occurrence: None)
  Receive Date: 20110429
  Receipt Date: 20110425
  Transmission Date: 20111010
  Serious: Yes (Other)
  Sender: FDA-Public Use
  Company Number: US-PFIZER INC-2011056004

PATIENT
  Sex: Female
  Weight: 91.61 kg

DRUGS (8)
  1. LYRICA [Suspect]
     Indication: ARTHRITIS
     Dosage: 50 MG, 2X/DAY
     Route: 048
     Dates: start: 20110210, end: 20110201
  2. COZAAR [Concomitant]
     Indication: HYPERTENSION
     Dosage: 50 MG, 1X/DAY
  3. GLIMEPIRIDE [Concomitant]
     Indication: DIABETES MELLITUS
     Dosage: 4 MG, DAILY
     Route: 048
  4. LYRICA [Suspect]
     Indication: INTERVERTEBRAL DISC DISORDER
     Dosage: 50 MG, 3X/DAY
     Route: 048
     Dates: start: 20110201, end: 20110312
  5. METFORMIN [Concomitant]
     Indication: DIABETES MELLITUS
     Dosage: 500 MG, 2X/DAY
     Route: 048
  6. XANAX [Concomitant]
     Indication: ANXIETY
     Dosage: UNK
  7. XANAX [Concomitant]
     Indication: STRESS
  8. LORTAB [Concomitant]
     Indication: PAIN
     Dosage: 5/500MG FOUR TIMES DAILY
     Route: 048
     Dates: start: 20100101

REACTIONS (4)
  - CELLULITIS [None]
  - BRONCHITIS [None]
  - DYSPNOEA [None]
  - NAUSEA [None]
